FAERS Safety Report 5166816-1 (Version None)
Quarter: 2006Q4

REPORT INFORMATION
  Report Type: 
  Country: None (occurrence: None)
  Receive Date: 20061207
  Receipt Date: 20061123
  Transmission Date: 20070319
  Serious: Yes (Other)
  Sender: FDA-Public Use
  Company Number: GB-MERCK-0611GBR00144

PATIENT
  Age: 53 Year
  Sex: Female
  Weight: 60 kg

DRUGS (2)
  1. ZOCOR [Suspect]
     Indication: BLOOD CHOLESTEROL INCREASED
     Route: 048
     Dates: start: 20060719, end: 20060726
  2. ESTRADIOL CYPIONATE [Concomitant]
     Indication: MENOPAUSE
     Route: 048
     Dates: start: 20051114

REACTIONS (2)
  - COUGH [None]
  - RESPIRATORY DISORDER [None]
